FAERS Safety Report 5151378-5 (Version None)
Quarter: 2006Q4

REPORT INFORMATION
  Report Type: 
  Country: None (occurrence: None)
  Receive Date: 20061115
  Receipt Date: 20061107
  Transmission Date: 20070319
  Serious: Yes (Death)
  Sender: FDA-Public Use
  Company Number: US-BRACCO-BDI-008833

PATIENT
  Sex: Male
  Weight: 50 kg

DRUGS (2)
  1. MULTIHANCE [Suspect]
     Route: 042
     Dates: start: 20061107, end: 20061107
  2. ANTIBIOTICS [Concomitant]
     Route: 042

REACTIONS (5)
  - CARDIO-RESPIRATORY ARREST [None]
  - COUGH [None]
  - HYPERHIDROSIS [None]
  - PUPIL FIXED [None]
  - RESPIRATORY DISORDER [None]
